FAERS Safety Report 6162722-4 (Version None)
Quarter: 2009Q2

REPORT INFORMATION
  Report Type: 
  Country: None (occurrence: None)
  Receive Date: 20090421
  Receipt Date: 20080319
  Transmission Date: 20091009
  Serious: No
  Sender: FDA-Public Use
  Company Number: US-ASTRAZENECA-2008UW05537

PATIENT
  Sex: Female

DRUGS (7)
  1. TOPROL-XL [Suspect]
     Indication: HYPERTENSION
     Route: 048
  2. ADVANCED EYE RELIEF/DRY EYE REJUVENATION PF [Concomitant]
     Indication: DRY EYE
     Route: 031
     Dates: start: 20080229, end: 20080312
  3. ACTONEL [Concomitant]
     Dates: end: 20080214
  4. CALCIUM [Concomitant]
  5. CENTRUM SILVER [Concomitant]
  6. FLONASE [Concomitant]
  7. COZAAR [Concomitant]
     Route: 048

REACTIONS (4)
  - ABNORMAL SENSATION IN EYE [None]
  - FACIAL PAIN [None]
  - KERATOCONJUNCTIVITIS SICCA [None]
  - VISUAL ACUITY REDUCED [None]
